FAERS Safety Report 9957072 (Version 1)
Quarter: 2014Q1

REPORT INFORMATION
  Report Type: Report from Study
  Country: US (occurrence: US)
  Receive Date: 20140304
  Receipt Date: 20140304
  Transmission Date: 20141002
  Serious: No
  Sender: FDA-Public Use
  Company Number: US-ABBVIE-13P-163-1099666-00

PATIENT
  Age: 19 Year
  Sex: Male

DRUGS (4)
  1. HUMIRA [Suspect]
     Indication: CROHN^S DISEASE
     Dosage: DOSE INCREASED
     Route: 058
     Dates: start: 201209, end: 201209
  2. HUMIRA [Suspect]
     Route: 058
     Dates: start: 201209, end: 201209
  3. HUMIRA [Suspect]
     Route: 058
     Dates: start: 201210, end: 201305
  4. HUMIRA [Suspect]
     Route: 058
     Dates: start: 201305

REACTIONS (1)
  - Drug ineffective [Unknown]
